FAERS Safety Report 10521799 (Version 1)
Quarter: 2014Q4

REPORT INFORMATION
  Report Type: Spontaneous
  Country: US (occurrence: US)
  Receive Date: 20141016
  Receipt Date: 20141016
  Transmission Date: 20150528
  Serious: Yes (Congenital Anomaly, Other)
  Sender: FDA-Public Use
  Company Number: US-ABBVIE-14P-163-1293731-00

PATIENT

DRUGS (1)
  1. DEPAKOTE [Suspect]
     Active Substance: DIVALPROEX SODIUM
     Indication: MATERNAL EXPOSURE TIMING UNSPECIFIED
     Route: 064

REACTIONS (21)
  - Abnormal behaviour [Unknown]
  - Branchial cyst [Unknown]
  - Multiple injuries [Unknown]
  - Unevaluable event [Unknown]
  - Mental impairment [Unknown]
  - Nervous system disorder [Unknown]
  - Anhedonia [Unknown]
  - Anxiety [Unknown]
  - Memory impairment [Unknown]
  - Impaired reasoning [Unknown]
  - Pain [Unknown]
  - Foetal exposure during pregnancy [Unknown]
  - Cognitive disorder [Unknown]
  - Economic problem [Unknown]
  - Injury [Unknown]
  - Physical disability [Unknown]
  - Emotional distress [Unknown]
  - Congenital anomaly [Unknown]
  - Disturbance in attention [Unknown]
  - Executive dysfunction [Unknown]
  - Speech disorder [Unknown]
